FAERS Safety Report 9259620 (Version 2)
Quarter: 2013Q2

REPORT INFORMATION
  Report Type: Spontaneous
  Country: FR (occurrence: FR)
  Receive Date: 20130429
  Receipt Date: 20130513
  Transmission Date: 20140414
  Serious: Yes (Other)
  Sender: FDA-Public Use
  Company Number: FR-UCBSA-084282

PATIENT
  Age: 73 Year
  Sex: Male
  Weight: 80.5 kg

DRUGS (4)
  1. KEPPRA [Suspect]
     Indication: CONVULSION
     Route: 042
     Dates: start: 20130405, end: 20130412
  2. CLINDAMYCINE KABI [Suspect]
     Route: 042
     Dates: start: 20130405, end: 20130415
  3. AMOXICILLINE PANPHARMA [Suspect]
     Route: 042
     Dates: start: 20130329, end: 20130417
  4. JOSIR [Concomitant]
     Indication: BENIGN PROSTATIC HYPERPLASIA

REACTIONS (3)
  - Rash maculo-papular [Recovered/Resolved]
  - Renal failure acute [Recovering/Resolving]
  - Eosinophilia [Not Recovered/Not Resolved]
